FAERS Safety Report 10563514 (Version 3)
Quarter: 2015Q1

REPORT INFORMATION
  Report Type: Spontaneous
  Country: US (occurrence: US)
  Receive Date: 20141104
  Receipt Date: 20150128
  Transmission Date: 20150720
  Serious: No
  Sender: FDA-Public Use
  Company Number: US-TEVA-520011USA

PATIENT
  Age: 36 Year
  Sex: Female
  Weight: 62.2 kg

DRUGS (3)
  1. PRENATAL VITAMINS [Concomitant]
     Active Substance: VITAMINS
     Indication: POSTPARTUM STATE
  2. PARAGARD T 380A [Suspect]
     Active Substance: COPPER
     Route: 015
  3. PARAGARD T 380A [Suspect]
     Active Substance: COPPER
     Indication: CONTRACEPTION
     Route: 015
     Dates: start: 20140904

REACTIONS (4)
  - Sinus disorder [Not Recovered/Not Resolved]
  - Metrorrhagia [Unknown]
  - Vulvovaginal dryness [Unknown]
  - Device expulsion [Recovered/Resolved]

NARRATIVE: CASE EVENT DATE: 20141031
